FAERS Safety Report 19736928 (Version 1)
Quarter: 2021Q3

REPORT INFORMATION
  Report Type: Spontaneous
  Country: US (occurrence: US)
  Receive Date: 20210820
  Receipt Date: 20210820
  Transmission Date: 20211014
  Serious: Yes (Death)
  Sender: FDA-Public Use
  Company Number: None

PATIENT
  Age: 66 Year
  Sex: Male

DRUGS (1)
  1. FLUOROURACIL SDV 5G/100ML [Suspect]
     Active Substance: FLUOROURACIL
     Dosage: ?          OTHER STRENGTH:5G/100ML;?
     Route: 042
     Dates: start: 20210628, end: 20210719

REACTIONS (1)
  - Death [None]

NARRATIVE: CASE EVENT DATE: 20210728
